FAERS Safety Report 19828233 (Version 1)
Quarter: 2021Q3

REPORT INFORMATION
  Report Type: Spontaneous
  Country: DE (occurrence: DE)
  Receive Date: 20210914
  Receipt Date: 20210914
  Transmission Date: 20211014
  Serious: Yes (Death, Hospitalization)
  Sender: FDA-Public Use
  Company Number: DE-TEVA-2021-DE-1951454

PATIENT
  Age: 63 Year
  Sex: Male
  Weight: 74 kg

DRUGS (14)
  1. HYDROMORPHON [Suspect]
     Active Substance: HYDROMORPHONE
     Dosage: 32 MILLIGRAM DAILY; 1?0?1?0
     Route: 065
  2. METAMIZOL [Concomitant]
     Active Substance: METAMIZOLE SODIUM
     Dosage: 2000 MILLIGRAM DAILY; 1?1?1?1
  3. COLECALCIFEROL (VITAMIN D) [Concomitant]
     Active Substance: CHOLECALCIFEROL
     Dosage: 1000 IU (INTERNATIONAL UNIT) DAILY;
  4. MACROGOL/KALIUMCHLORID/NATRIUMCARBONAT/NATRIUMCHLORID [Concomitant]
     Dosage: 1 DOSAGE FORMS DAILY; 1?0?0?0
  5. MIRTAZAPIN [Concomitant]
     Active Substance: MIRTAZAPINE
     Dosage: 30 MILLIGRAM DAILY; 0?0?0?1
  6. PANTOPRAZOL [Concomitant]
     Active Substance: PANTOPRAZOLE SODIUM
     Dosage: 40 MILLIGRAM DAILY; 1?0?0?0
  7. PREGABALIN. [Concomitant]
     Active Substance: PREGABALIN
     Dosage: 75 MG, 1?0?2?0
  8. MORPHIN [Suspect]
     Active Substance: MORPHINE
     Dosage: 2.6 MG, AS NEEDED
     Route: 065
  9. DEXAMETHASON [Suspect]
     Active Substance: DEXAMETHASONE
     Dosage: 8 MILLIGRAM DAILY; 1?0?1?0
     Route: 065
  10. TORASEMID [Suspect]
     Active Substance: TORSEMIDE
     Dosage: 4 DOSAGE FORMS DAILY; 10 MG, 2?2?0?0
     Route: 065
  11. KALIUM [Concomitant]
     Active Substance: POTASSIUM CHLORIDE
     Dosage: 16 MILLIMOL DAILY; 1?1?0?0
  12. LORAZEPAM. [Concomitant]
     Active Substance: LORAZEPAM
     Dosage: 1 MILLIGRAM DAILY; 0?0?0?1
  13. PREDNICARBAT [Concomitant]
     Active Substance: PREDNICARBATE
     Dosage: SCHEME
  14. AMLODIPIN [Concomitant]
     Active Substance: AMLODIPINE BESYLATE
     Dosage: 5 MILLIGRAM DAILY; 0?0?1?0

REACTIONS (6)
  - Fatigue [Unknown]
  - General physical health deterioration [Unknown]
  - Condition aggravated [Unknown]
  - Systemic infection [Unknown]
  - Weight increased [Unknown]
  - Anaemia [Unknown]
